FAERS Safety Report 16185739 (Version 1)
Quarter: 2019Q2

REPORT INFORMATION
  Report Type: Spontaneous
  Country: US (occurrence: US)
  Receive Date: 20190308
  Receipt Date: 20190308
  Transmission Date: 20190711
  Serious: Yes (Other)
  Sender: FDA-Public Use
  Company Number: None

PATIENT
  Age: 54 Year
  Sex: Female
  Weight: 43.09 kg

DRUGS (11)
  1. TRAMODOL [Concomitant]
     Active Substance: TRAMADOL
  2. MAXALT [Concomitant]
     Active Substance: RIZATRIPTAN BENZOATE
  3. TRAMODOL [Suspect]
     Active Substance: TRAMADOL
     Indication: ANKYLOSING SPONDYLITIS
     Dosage: ?          QUANTITY:50 MG MILLIGRAM(S);OTHER FREQUENCY:FIVE TIMES DAILY;?
     Route: 048
     Dates: start: 20190213, end: 20190221
  4. LEVOTHYROXINE. [Concomitant]
     Active Substance: LEVOTHYROXINE
  5. MELATONIN [Concomitant]
     Active Substance: MELATONIN
  6. HUMIRA [Concomitant]
     Active Substance: ADALIMUMAB
  7. VIT B-2 [Concomitant]
  8. ZANTAC [Concomitant]
     Active Substance: RANITIDINE HYDROCHLORIDE
  9. SENNA [Concomitant]
     Active Substance: SENNA LEAF\SENNOSIDES\SENNOSIDES A AND B
  10. LINZESS [Concomitant]
     Active Substance: LINACLOTIDE
  11. MAGNESIUM [Concomitant]
     Active Substance: MAGNESIUM

REACTIONS (8)
  - Abdominal pain upper [None]
  - Pain [None]
  - Sleep disorder due to a general medical condition [None]
  - Headache [None]
  - Migraine [None]
  - Inadequate analgesia [None]
  - Muscle spasms [None]
  - Condition aggravated [None]

NARRATIVE: CASE EVENT DATE: 20190213
